FAERS Safety Report 5400903-5 (Version None)
Quarter: 2007Q3

REPORT INFORMATION
  Report Type: 
  Country: None (occurrence: None)
  Receive Date: 20070730
  Receipt Date: 20060615
  Transmission Date: 20080115
  Serious: No
  Sender: FDA-Public Use
  Company Number: A0609321A

PATIENT
  Age: 13 Month
  Sex: Male

DRUGS (2)
  1. ZANTAC 150 [Suspect]
     Indication: GASTROOESOPHAGEAL REFLUX DISEASE
  2. MILK [Suspect]

REACTIONS (1)
  - VOMITING [None]
